FAERS Safety Report 6354562-8 (Version None)
Quarter: 2009Q3

REPORT INFORMATION
  Report Type: 
  Country: None (occurrence: None)
  Receive Date: 20090914
  Receipt Date: 20090903
  Transmission Date: 20100115
  Serious: Yes (Death, Life-Threatening, Hospitalization, Other)
  Sender: FDA-Public Use
  Company Number: BW-BRISTOL-MYERS SQUIBB COMPANY-14767131

PATIENT
  Age: 29 Year
  Sex: Female
  Weight: 49 kg

DRUGS (11)
  1. EFAVIRENZ [Suspect]
     Indication: HIV INFECTION
     Route: 048
     Dates: start: 20090806, end: 20090828
  2. TRUVADA [Suspect]
     Indication: HIV INFECTION
     Route: 048
     Dates: start: 20090806, end: 20090828
  3. ISONIAZID [Suspect]
     Indication: PULMONARY TUBERCULOSIS
     Route: 048
     Dates: start: 20090727, end: 20090828
  4. ETHAMBUTOL [Suspect]
     Indication: PULMONARY TUBERCULOSIS
     Route: 048
     Dates: start: 20090727, end: 20090828
  5. RIFAMPICIN [Suspect]
     Indication: PULMONARY TUBERCULOSIS
     Route: 048
     Dates: start: 20090727, end: 20090828
  6. PYRAZINAMIDE [Suspect]
     Indication: PULMONARY TUBERCULOSIS
     Route: 048
     Dates: start: 20090727, end: 20090828
  7. COTRIM [Suspect]
     Indication: ADJUVANT THERAPY
     Route: 048
     Dates: start: 20090727, end: 20090828
  8. COTRIM [Suspect]
     Indication: PROPHYLAXIS
     Route: 048
     Dates: start: 20090727, end: 20090828
  9. PYRIDOXINE [Concomitant]
     Indication: ADJUVANT THERAPY
     Dates: start: 20090727, end: 20090828
  10. PYRIDOXINE [Concomitant]
     Indication: PROPHYLAXIS
     Dates: start: 20090727, end: 20090828
  11. NYSTATIN [Concomitant]
     Dosage: NYSTATIN ORAL DROPS
     Dates: start: 20090828

REACTIONS (3)
  - COMA HEPATIC [None]
  - HEPATOTOXICITY [None]
  - STEVENS-JOHNSON SYNDROME [None]
